FAERS Safety Report 5498933-0 (Version None)
Quarter: 2007Q4

REPORT INFORMATION
  Report Type: 
  Country: None (occurrence: None)
  Receive Date: 20071026
  Receipt Date: 20070507
  Transmission Date: 20080405
  Serious: No
  Sender: FDA-Public Use
  Company Number: A0650260A

PATIENT
  Age: 90 Year
  Sex: Female

DRUGS (3)
  1. ADVAIR DISKUS 100/50 [Suspect]
     Indication: COLLAPSE OF LUNG
     Dosage: 250MG TWICE PER DAY
     Route: 055
     Dates: start: 20061201
  2. BENICAR [Concomitant]
  3. ZOLOFT [Concomitant]

REACTIONS (3)
  - DIZZINESS [None]
  - HEADACHE [None]
  - HEARING IMPAIRED [None]
